FAERS Safety Report 8168521-6 (Version None)
Quarter: 2012Q1

REPORT INFORMATION
  Report Type: 
  Country: None (occurrence: None)
  Receive Date: 20120227
  Receipt Date: 20120227
  Transmission Date: 20120608
  Serious: Yes (Other)
  Sender: FDA-Public Use
  Company Number: None

PATIENT
  Age: 76 Year
  Sex: Male
  Weight: 81.646 kg

DRUGS (1)
  1. ACETAMINOPHEN AND HYDROCODONE BITARTRATE [Suspect]
     Dosage: ONE OR TWO TABLETS
     Route: 048
     Dates: start: 20111028, end: 20111030

REACTIONS (3)
  - VISCERAL OEDEMA [None]
  - GASTROINTESTINAL EROSION [None]
  - DRUG INTOLERANCE [None]
